FAERS Safety Report 9760374 (Version 1)
Quarter: 2013Q4

REPORT INFORMATION
  Report Type: Spontaneous
  Country: US (occurrence: US)
  Receive Date: 20131216
  Receipt Date: 20131216
  Transmission Date: 20140711
  Serious: No
  Sender: FDA-Public Use
  Company Number: US-GILEAD-2010-0029617

PATIENT
  Age: 71 Year
  Sex: Female

DRUGS (12)
  1. LETAIRIS [Suspect]
     Indication: PULMONARY ARTERIAL HYPERTENSION
     Route: 048
     Dates: start: 20100215
  2. STRATTERA [Concomitant]
  3. ACUVAIL [Concomitant]
  4. ATENOLOL [Concomitant]
  5. METHYLPRED [Concomitant]
  6. ADVIL PM [Concomitant]
  7. FISH OIL [Concomitant]
  8. PRED FORTE SUS [Concomitant]
  9. PERCOCET [Concomitant]
  10. DULCOLAX MOM [Concomitant]
  11. MULTIVITAMIN [Concomitant]
  12. TYLENOL PM [Concomitant]

REACTIONS (1)
  - Constipation [Not Recovered/Not Resolved]
